FAERS Safety Report 6260868-3 (Version None)
Quarter: 2009Q3

REPORT INFORMATION
  Report Type: 
  Country: None (occurrence: None)
  Receive Date: 20090707
  Receipt Date: 20090630
  Transmission Date: 20100115
  Serious: Yes (Hospitalization)
  Sender: FDA-Public Use
  Company Number: CHNY2009DE02579

PATIENT
  Age: 30 Year
  Sex: Female

DRUGS (6)
  1. NICOTINELL GUM             (NICOTINE) CHEWABLE GUM [Suspect]
     Indication: SMOKING CESSATION THERAPY
     Dosage: 10 MG DAILY, CHEWED
     Dates: start: 20090527, end: 20090527
  2. LAMOTRIGINE [Concomitant]
  3. PAROXETINE HCL [Concomitant]
  4. BUDES (BUDESONIDE) [Concomitant]
  5. VESIKUR (SOLIFENACIN SUCCINATE) [Concomitant]
  6. ALL OTHER THERAPEUTIC PRODUCTS (NO INGREDIENTS/SUBSTANCES) [Concomitant]

REACTIONS (5)
  - ASTHENIA [None]
  - HEADACHE [None]
  - MUSCULOSKELETAL STIFFNESS [None]
  - PAIN [None]
  - TRISMUS [None]
